FAERS Safety Report 4951897-8 (Version None)
Quarter: 2006Q1

REPORT INFORMATION
  Report Type: 
  Country: None (occurrence: None)
  Receive Date: 20060323
  Receipt Date: 20051202
  Transmission Date: 20060701
  Serious: Yes (Hospitalization)
  Sender: FDA-Public Use
  Company Number: DE-MERCK-0512DEU00027

PATIENT
  Age: 39 Year
  Sex: Male

DRUGS (1)
  1. PROPECIA [Suspect]
     Indication: ALOPECIA
     Route: 048
     Dates: end: 20051201

REACTIONS (2)
  - BRONCHITIS BACTERIAL [None]
  - LIVER DISORDER [None]
